FAERS Safety Report 4453806-7 (Version None)
Quarter: 2004Q3

REPORT INFORMATION
  Report Type: 
  Country: None (occurrence: None)
  Receive Date: 20040826
  Receipt Date: 20040505
  Transmission Date: 20050211
  Serious: No
  Sender: FDA-Public Use
  Company Number: WAES 0405USA00355

PATIENT
  Age: 53 Year
  Sex: Female
  Weight: 84.8226 kg

DRUGS (5)
  1. ZETIA [Suspect]
     Indication: HYPERCHOLESTEROLAEMIA
     Dosage: 10 MG/DAILY/PO
     Route: 048
     Dates: start: 20030314, end: 20030414
  2. ALEVE [Concomitant]
  3. CARTIA (DILTIAZEM HYDROCHLORIDE) [Concomitant]
  4. ZESTRIL [Concomitant]
  5. METFORMIN HCL [Concomitant]

REACTIONS (2)
  - LIVER FUNCTION TEST ABNORMAL [None]
  - RASH [None]
